FAERS Safety Report 7525886-3 (Version None)
Quarter: 2011Q2

REPORT INFORMATION
  Report Type: 
  Country: None (occurrence: None)
  Receive Date: 20110606
  Receipt Date: 20110520
  Transmission Date: 20111010
  Serious: Yes (Congenital Anomaly)
  Sender: FDA-Public Use
  Company Number: A0930259A

PATIENT
  Sex: Female

DRUGS (3)
  1. LABETALOL [Concomitant]
     Dosage: 100MG TWICE PER DAY
     Route: 064
  2. PAXIL [Suspect]
     Dosage: 20MG PER DAY
     Route: 064
  3. PRENATAL VITAMINS [Concomitant]
     Route: 064

REACTIONS (2)
  - ATRIAL SEPTAL DEFECT [None]
  - DRUG EXPOSURE DURING PREGNANCY [None]
